FAERS Safety Report 9605230 (Version 1)
Quarter: 2013Q4

REPORT INFORMATION
  Report Type: Spontaneous
  Country: GB (occurrence: GB)
  Receive Date: 20131008
  Receipt Date: 20131008
  Transmission Date: 20140711
  Serious: Yes (Life-Threatening)
  Sender: FDA-Public Use
  Company Number: GB-TEVA-436535ISR

PATIENT
  Age: 57 Year
  Sex: Female

DRUGS (6)
  1. CARBOPLATIN [Suspect]
  2. COLCHICINE [Suspect]
  3. PROPRANOLOL [Concomitant]
  4. DIAZEPAM [Concomitant]
  5. AMITRIPTYLINE [Concomitant]
  6. LANSOPRAZOLE [Concomitant]

REACTIONS (2)
  - Platelet count decreased [Recovering/Resolving]
  - Haemoptysis [Recovering/Resolving]
